FAERS Safety Report 7378311-X (Version None)
Quarter: 2011Q1

REPORT INFORMATION
  Report Type: 
  Country: None (occurrence: None)
  Receive Date: 20110328
  Receipt Date: 20110320
  Transmission Date: 20110831
  Serious: Yes (Other)
  Sender: FDA-Public Use
  Company Number: US-RB-023486-11

PATIENT
  Age: 53 Year
  Sex: Female

DRUGS (2)
  1. MUCINEX DM [Suspect]
     Indication: PRODUCT USED FOR UNKNOWN INDICATION
     Dosage: DOSE TAKEN ON 17-MAR-2011
     Route: 048
  2. WELLBUTRIN [Concomitant]

REACTIONS (3)
  - DISORIENTATION [None]
  - HYPOAESTHESIA [None]
  - HALLUCINATION [None]
